FAERS Safety Report 19707393 (Version 1)
Quarter: 2021Q3

REPORT INFORMATION
  Report Type: Spontaneous
  Country: US (occurrence: US)
  Receive Date: 20210817
  Receipt Date: 20210817
  Transmission Date: 20211014
  Serious: Yes (Hospitalization)
  Sender: FDA-Public Use
  Company Number: US-MYLANLABS-2021M1052545

PATIENT
  Age: 34 Year
  Sex: Female

DRUGS (5)
  1. CLOMIPHENE [Suspect]
     Active Substance: CLOMIPHENE
     Indication: INFERTILITY FEMALE
     Dosage: 50 MILLIGRAM, CYCLE, FIRST CYCLE
     Route: 065
  2. HCG [Suspect]
     Active Substance: GONADOTROPHIN, CHORIONIC
     Indication: INFERTILITY FEMALE
     Dosage: 250 MICROGRAM
     Route: 058
  3. VANCOMYCIN [Suspect]
     Active Substance: VANCOMYCIN
     Indication: ANTIBIOTIC PROPHYLAXIS
     Dosage: UNK
     Route: 065
  4. FLAGYL [Suspect]
     Active Substance: METRONIDAZOLE\METRONIDAZOLE HYDROCHLORIDE
     Indication: ANTIBIOTIC PROPHYLAXIS
     Dosage: UNK
     Route: 065
  5. CEFTRIAXONE. [Suspect]
     Active Substance: CEFTRIAXONE
     Indication: ANTIBIOTIC PROPHYLAXIS
     Dosage: UNK
     Route: 065

REACTIONS (2)
  - Maternal exposure during pregnancy [Unknown]
  - Disseminated coccidioidomycosis [Recovering/Resolving]
